FAERS Safety Report 11449120 (Version 1)
Quarter: 2015Q3

REPORT INFORMATION
  Report Type: Spontaneous
  Country: US (occurrence: US)
  Receive Date: 20150902
  Receipt Date: 20150902
  Transmission Date: 20151125
  Serious: No
  Sender: FDA-Public Use
  Company Number: GXBR2014US002242

PATIENT
  Sex: Female

DRUGS (1)
  1. ERGOTAMINE TARTRATE/CAFFEINE SANDOZ [Suspect]
     Active Substance: CAFFEINE\ERGOTAMINE TARTRATE
     Indication: MIGRAINE
     Dosage: 2 MG, BID
     Route: 065

REACTIONS (1)
  - Urethritis [Recovered/Resolved]

NARRATIVE: CASE EVENT DATE: 2011
